FAERS Safety Report 5429336-2 (Version None)
Quarter: 2007Q3

REPORT INFORMATION
  Report Type: 
  Country: None (occurrence: None)
  Receive Date: 20070829
  Receipt Date: 20070822
  Transmission Date: 20080115
  Serious: Yes (Other)
  Sender: FDA-Public Use
  Company Number: PHEH2007US11490

PATIENT
  Age: 44 Year
  Sex: Female
  Weight: 44.444 kg

DRUGS (5)
  1. NORDETTE-21 [Suspect]
     Indication: CONTRACEPTION
     Dosage: 1 TABLET, DAILY
     Route: 048
     Dates: start: 19970101
  2. LYRICA [Concomitant]
     Indication: TRIGEMINAL NEURALGIA
  3. ELAVIL [Concomitant]
  4. TRILEPTAL [Suspect]
     Indication: TRIGEMINAL NEURALGIA
     Dosage: 900 MG, UNK
     Route: 048
     Dates: start: 20061101
  5. TRILEPTAL [Suspect]
     Dosage: 300 MG, UNK
     Route: 048

REACTIONS (6)
  - BLOOD OESTROGEN DECREASED [None]
  - DRUG INEFFECTIVE [None]
  - DRUG INTERACTION [None]
  - MENSTRUATION IRREGULAR [None]
  - OLIGOMENORRHOEA [None]
  - SURGERY [None]
